FAERS Safety Report 5170336-8 (Version None)
Quarter: 2006Q4

REPORT INFORMATION
  Report Type: 
  Country: None (occurrence: None)
  Receive Date: 20061204
  Receipt Date: 20061122
  Transmission Date: 20070319
  Serious: Yes (Other)
  Sender: FDA-Public Use
  Company Number: 2006JP004820

PATIENT
  Sex: Female

DRUGS (5)
  1. VESICARE [Suspect]
     Indication: POLLAKIURIA
     Dosage: 5  MG, UID/QD, ORAL
     Route: 048
     Dates: start: 20061001
  2. DOGMATYL TABLET [Concomitant]
  3. ALPRAZOLAM [Concomitant]
  4. LIVALO (ITAVASTATIN CALCIUM) [Concomitant]
  5. MAGNESIUM OXIDE (MAGNESIUM OXIDE) [Concomitant]

REACTIONS (2)
  - ATRIAL FIBRILLATION [None]
  - BRADYCARDIA [None]
